FAERS Safety Report 10872878 (Version 1)
Quarter: 2015Q1

REPORT INFORMATION
  Report Type: Spontaneous
  Country: US (occurrence: None)
  Receive Date: 20150223
  Receipt Date: 20150223
  Transmission Date: 20150721
  Serious: Yes (Hospitalization)
  Sender: FDA-Public Use
  Company Number: None

PATIENT
  Age: 87 Year
  Sex: Female
  Weight: 73.9 kg

DRUGS (1)
  1. BACLOFEN. [Suspect]
     Active Substance: BACLOFEN
     Indication: PAIN
     Dosage: ONE-HALF TAB TID PO
     Route: 048
     Dates: start: 20141029, end: 20141103

REACTIONS (3)
  - Muscle spasms [None]
  - Accidental overdose [None]
  - Mental status changes [None]

NARRATIVE: CASE EVENT DATE: 20141103
